FAERS Safety Report 7292259-0 (Version None)
Quarter: 2010Q4

REPORT INFORMATION
  Report Type: 
  Country: None (occurrence: None)
  Receive Date: 20101223
  Receipt Date: 20100106
  Transmission Date: 20110411
  Serious: Yes (Other)
  Sender: FDA-Public Use
  Company Number: FEI2009-2426

PATIENT
  Age: 33 Year
  Sex: Female
  Weight: 48.4 kg

DRUGS (2)
  1. PARAGARD T 380A [Suspect]
     Indication: CONTRACEPTION
     Dosage: I.U.
     Dates: start: 20020701, end: 20060101
  2. PARAGARD T 380A [Suspect]
     Indication: CONTRACEPTION
     Dosage: I.U.
     Dates: start: 20070124, end: 20091125

REACTIONS (6)
  - ABORTION SPONTANEOUS [None]
  - ANXIETY [None]
  - BLIGHTED OVUM [None]
  - CYSTITIS [None]
  - LOSS OF CONSCIOUSNESS [None]
  - UNINTENDED PREGNANCY [None]
